FAERS Safety Report 16319185 (Version 1)
Quarter: 2019Q2

REPORT INFORMATION
  Report Type: Spontaneous
  Country: US (occurrence: US)
  Receive Date: 20190515
  Receipt Date: 20190515
  Transmission Date: 20190711
  Serious: Yes (Hospitalization, Other)
  Sender: FDA-Public Use
  Company Number: None

PATIENT
  Age: 29 Year
  Sex: Female
  Weight: 72 kg

DRUGS (1)
  1. CYMBALTA [Suspect]
     Active Substance: DULOXETINE HYDROCHLORIDE
     Indication: DEPRESSION
     Dosage: ?          QUANTITY:1 CAPSULE(S);?
     Route: 048
     Dates: start: 20170301, end: 20190515

REACTIONS (6)
  - Tremor [None]
  - Vomiting [None]
  - Palpitations [None]
  - Hypoaesthesia [None]
  - Product complaint [None]
  - Drug withdrawal syndrome [None]

NARRATIVE: CASE EVENT DATE: 20190515
